FAERS Safety Report 8537135-8 (Version None)
Quarter: 2012Q3

REPORT INFORMATION
  Report Type: 
  Country: None (occurrence: None)
  Receive Date: 20120725
  Receipt Date: 20120711
  Transmission Date: 20120928
  Serious: No
  Sender: FDA-Public Use
  Company Number: US-ASTRAZENECA-2012SE47909

PATIENT
  Sex: Male

DRUGS (1)
  1. ZOMIG [Suspect]
     Dosage: 2.5 MG 4 TO 5 TABLETS PER DAY
     Route: 048

REACTIONS (4)
  - OFF LABEL USE [None]
  - MIGRAINE [None]
  - DRUG EFFECT DECREASED [None]
  - DRUG DOSE OMISSION [None]
